FAERS Safety Report 10600828 (Version 2)
Quarter: 2014Q4

REPORT INFORMATION
  Report Type: Spontaneous
  Country: IT (occurrence: IT)
  Receive Date: 20141124
  Receipt Date: 20141201
  Transmission Date: 20150529
  Serious: Yes (Death)
  Sender: FDA-Public Use
  Company Number: IT-009507513-1411ITA009178

PATIENT
  Age: 61 Year
  Sex: Male
  Weight: 95 kg

DRUGS (8)
  1. PLAVIX [Concomitant]
     Active Substance: CLOPIDOGREL BISULFATE
     Indication: CORONARY ARTERY DISEASE
     Dosage: MORNING
     Route: 048
  2. METFORALMILLE [Suspect]
     Active Substance: METFORMIN HYDROCHLORIDE
     Dosage: 1 POSOLOGICAL UNIT (1000 MG), DAILY (AT LUNCH)
     Route: 048
     Dates: start: 20110504, end: 20141111
  3. AMARYL [Concomitant]
     Active Substance: GLIMEPIRIDE
     Indication: DIABETES MELLITUS
     Dosage: MORNING
     Route: 048
  4. SEQUACOR [Concomitant]
     Active Substance: BISOPROLOL
     Indication: HYPERTENSION
     Dosage: EVENING
     Route: 048
  5. CARDIOASPIRIN [Concomitant]
     Active Substance: ASPIRIN
     Indication: CORONARY ARTERY DISEASE
     Dosage: AT LUNCH
     Route: 048
  6. HYDROCHLOROTHIAZIDE\VALSARTAN [Concomitant]
     Active Substance: HYDROCHLOROTHIAZIDE\VALSARTAN
     Indication: HYPERTENSION
     Dosage: MORNING
     Route: 048
  7. EFFICIB [Suspect]
     Active Substance: METFORMIN HYDROCHLORIDE\SITAGLIPTIN PHOSPHATE
     Dosage: 2 POSOLOGICAL UNITS, DAILY (MORNING AND EVENING)
     Route: 048
     Dates: start: 20110504, end: 20141111
  8. LENTO-KALIUM [Concomitant]
     Indication: HYPOKALAEMIA
     Dosage: MORNING
     Route: 048

REACTIONS (1)
  - Lactic acidosis [Fatal]

NARRATIVE: CASE EVENT DATE: 20141111
